FAERS Safety Report 7624262-2 (Version None)
Quarter: 2011Q3

REPORT INFORMATION
  Report Type: 
  Country: None (occurrence: None)
  Receive Date: 20110712
  Receipt Date: 20110627
  Transmission Date: 20111222
  Serious: Yes (Hospitalization)
  Sender: FDA-Public Use
  Company Number: 1000021995

PATIENT
  Age: 22 Year
  Sex: Male

DRUGS (20)
  1. CITALOPRAM HYDROBROMIDE [Suspect]
     Indication: MAJOR DEPRESSION
     Dosage: SEE IMAGE
     Route: 048
     Dates: start: 20110215, end: 20110217
  2. CITALOPRAM HYDROBROMIDE [Suspect]
     Indication: PANIC DISORDER
     Dosage: SEE IMAGE
     Route: 048
     Dates: start: 20110215, end: 20110217
  3. CITALOPRAM HYDROBROMIDE [Suspect]
     Indication: MAJOR DEPRESSION
     Dosage: SEE IMAGE
     Route: 048
     Dates: start: 20110310, end: 20110311
  4. CITALOPRAM HYDROBROMIDE [Suspect]
     Indication: PANIC DISORDER
     Dosage: SEE IMAGE
     Route: 048
     Dates: start: 20110310, end: 20110311
  5. CITALOPRAM HYDROBROMIDE [Suspect]
     Indication: MAJOR DEPRESSION
     Dosage: SEE IMAGE
     Route: 048
     Dates: start: 20110221, end: 20110309
  6. CITALOPRAM HYDROBROMIDE [Suspect]
     Indication: PANIC DISORDER
     Dosage: SEE IMAGE
     Route: 048
     Dates: start: 20110221, end: 20110309
  7. CITALOPRAM HYDROBROMIDE [Suspect]
     Indication: MAJOR DEPRESSION
     Dosage: SEE IMAGE
     Route: 048
     Dates: start: 20110212, end: 20110214
  8. CITALOPRAM HYDROBROMIDE [Suspect]
     Indication: PANIC DISORDER
     Dosage: SEE IMAGE
     Route: 048
     Dates: start: 20110212, end: 20110214
  9. CITALOPRAM HYDROBROMIDE [Suspect]
     Indication: MAJOR DEPRESSION
     Dosage: SEE IMAGE
     Route: 048
     Dates: start: 20110312, end: 20110314
  10. CITALOPRAM HYDROBROMIDE [Suspect]
     Indication: PANIC DISORDER
     Dosage: SEE IMAGE
     Route: 048
     Dates: start: 20110312, end: 20110314
  11. CITALOPRAM HYDROBROMIDE [Suspect]
     Indication: MAJOR DEPRESSION
     Dosage: SEE IMAGE
     Route: 048
     Dates: start: 20110218, end: 20110220
  12. CITALOPRAM HYDROBROMIDE [Suspect]
     Indication: PANIC DISORDER
     Dosage: SEE IMAGE
     Route: 048
     Dates: start: 20110218, end: 20110220
  13. TAXILAN (PERAZINE) [Suspect]
     Indication: RESTLESSNESS
     Dosage: SEE IMAGE
     Route: 048
     Dates: start: 20110315
  14. TAXILAN (PERAZINE) [Suspect]
     Indication: OBSESSIVE RUMINATION
     Dosage: SEE IMAGE
     Route: 048
     Dates: start: 20110315
  15. TAXILAN (PERAZINE) [Suspect]
     Indication: RESTLESSNESS
     Dosage: SEE IMAGE
     Route: 048
     Dates: start: 20110218, end: 20110307
  16. TAXILAN (PERAZINE) [Suspect]
     Indication: OBSESSIVE RUMINATION
     Dosage: SEE IMAGE
     Route: 048
     Dates: start: 20110218, end: 20110307
  17. TAXILAN (PERAZINE) [Suspect]
     Indication: RESTLESSNESS
     Dosage: SEE IMAGE
     Route: 048
     Dates: start: 20110217, end: 20110217
  18. TAXILAN (PERAZINE) [Suspect]
     Indication: OBSESSIVE RUMINATION
     Dosage: SEE IMAGE
     Route: 048
     Dates: start: 20110217, end: 20110217
  19. TAXILAN (PERAZINE) [Suspect]
     Indication: RESTLESSNESS
     Dosage: SEE IMAGE
     Route: 048
     Dates: start: 20110308, end: 20110314
  20. TAXILAN (PERAZINE) [Suspect]
     Indication: OBSESSIVE RUMINATION
     Dosage: SEE IMAGE
     Route: 048
     Dates: start: 20110308, end: 20110314

REACTIONS (2)
  - ANORGASMIA [None]
  - DRUG INTERACTION [None]
